FAERS Safety Report 5473970-0 (Version None)
Quarter: 2007Q3

REPORT INFORMATION
  Report Type: 
  Country: None (occurrence: None)
  Receive Date: 20070904
  Receipt Date: 20070426
  Transmission Date: 20080115
  Serious: Yes (Other)
  Sender: FDA-Public Use
  Company Number: 2007033358

PATIENT
  Age: 39 Year
  Sex: Male
  Weight: 109 kg

DRUGS (6)
  1. CAVERJECT [Suspect]
     Dosage: 5 MCG
     Dates: start: 20070401
  2. REBIF [Concomitant]
  3. EFFEXOR [Concomitant]
  4. NEURONTIN [Concomitant]
  5. WELLBUTRIN [Concomitant]
  6. LITHIUM CARBONATE [Concomitant]

REACTIONS (2)
  - DEVICE LEAKAGE [None]
  - DRUG INEFFECTIVE [None]
